FAERS Safety Report 16959193 (Version 18)
Quarter: 2022Q1

REPORT INFORMATION
  Report Type: Report from Study
  Country: DE (occurrence: DE)
  Receive Date: 20191024
  Receipt Date: 20220206
  Transmission Date: 20220423
  Serious: Yes (Death, Hospitalization, Other)
  Sender: FDA-Public Use
  Company Number: PHHY2019DE066967

PATIENT
  Age: 57 Year
  Sex: Female
  Weight: 62.6 kg

DRUGS (8)
  1. KISQALI [Suspect]
     Active Substance: RIBOCICLIB
     Indication: Breast cancer metastatic
     Dosage: 600 MG (21 DAYS INTAKE, 7 DAYS PAUSE)
     Route: 048
     Dates: start: 20181219, end: 20190325
  2. KISQALI [Suspect]
     Active Substance: RIBOCICLIB
     Dosage: 400 MG (21 DAYS INTAKE, 7 DAYS PAUSE)
     Route: 048
     Dates: start: 20190326, end: 20190624
  3. KISQALI [Suspect]
     Active Substance: RIBOCICLIB
     Dosage: 200 MG (21 DAYS INTAKE, 7 DAYS PAUSE)
     Route: 048
     Dates: start: 20190625, end: 20191210
  4. EXEMESTANE [Suspect]
     Active Substance: EXEMESTANE
     Indication: Breast cancer metastatic
     Dosage: 25 MG, QD
     Route: 048
     Dates: start: 20181219, end: 20191210
  5. RAMIPRIL [Concomitant]
     Active Substance: RAMIPRIL
     Indication: Hypertension
     Dosage: UNK
     Route: 048
  6. RAMIPRIL [Concomitant]
     Active Substance: RAMIPRIL
     Dosage: UNK
     Route: 048
  7. ZOLEDRONIC ACID [Concomitant]
     Active Substance: ZOLEDRONIC ACID
     Indication: Metastases to bone
     Dosage: 4 MG, QMO
     Route: 042
     Dates: start: 20170901, end: 20191210
  8. LEVOTHYROXINE SODIUM [Concomitant]
     Active Substance: LEVOTHYROXINE SODIUM
     Indication: Hypothyroidism
     Dosage: UNK
     Route: 048

REACTIONS (21)
  - Atypical pneumonia [Fatal]
  - Dyspnoea [Fatal]
  - General physical health deterioration [Fatal]
  - Haemoglobin decreased [Fatal]
  - Breast cancer [Fatal]
  - Malignant neoplasm progression [Fatal]
  - C-reactive protein increased [Fatal]
  - Dysphagia [Recovered/Resolved]
  - Regurgitation [Recovered/Resolved]
  - Pleural effusion [Recovering/Resolving]
  - Leukopenia [Not Recovered/Not Resolved]
  - Hyperhidrosis [Unknown]
  - Weight decreased [Unknown]
  - Blood creatinine increased [Recovered/Resolved]
  - Dizziness [Recovered/Resolved]
  - Nausea [Not Recovered/Not Resolved]
  - Vomiting [Not Recovered/Not Resolved]
  - Gamma-glutamyltransferase increased [Recovered/Resolved]
  - Nasopharyngitis [Unknown]
  - Pyrexia [Recovered/Resolved]
  - Incorrect dose administered [Recovered/Resolved]

NARRATIVE: CASE EVENT DATE: 20190103
